FAERS Safety Report 24031042 (Version 2)
Quarter: 2024Q3

REPORT INFORMATION
  Report Type: Spontaneous
  Country: PT (occurrence: PT)
  Receive Date: 20240628
  Receipt Date: 20240711
  Transmission Date: 20241017
  Serious: Yes (Other)
  Sender: GILEAD
  Company Number: PT-GILEAD-2024-0677595

PATIENT
  Age: 59 Year
  Sex: Female

DRUGS (1)
  1. TRODELVY [Suspect]
     Active Substance: SACITUZUMAB GOVITECAN-HZIY
     Indication: Hormone receptor positive HER2 negative breast cancer
     Dosage: UNK
     Route: 065
     Dates: start: 2022

REACTIONS (3)
  - Disease progression [Unknown]
  - Neutropenia [Unknown]
  - Diarrhoea [Unknown]
